FAERS Safety Report 6575563-0 (Version None)
Quarter: 2010Q1

REPORT INFORMATION
  Report Type: 
  Country: None (occurrence: None)
  Receive Date: 20100208
  Receipt Date: 20100208
  Transmission Date: 20100710
  Serious: Yes (Death)
  Sender: FDA-Public Use
  Company Number: None

PATIENT
  Age: 18 Year
  Sex: Female
  Weight: 63.6 kg

DRUGS (2)
  1. ANCOBON [Suspect]
     Indication: DRUG LEVEL
     Dosage: ANCOBON 1500 MG Q6H ORAL
     Route: 048
     Dates: start: 20091109, end: 20091110
  2. PROCHLORPERAZINE 5 MG/ML BEDFORD LABS [Suspect]
     Indication: NAUSEA
     Dosage: PROCHLORPERAZINE 5 MG ONCE I.M.
     Route: 030
     Dates: start: 20091110

REACTIONS (4)
  - CARDIAC ARREST [None]
  - GENERAL PHYSICAL HEALTH DETERIORATION [None]
  - HYPOTENSION [None]
  - IDIOSYNCRATIC DRUG REACTION [None]
